FAERS Safety Report 7998368-2 (Version None)
Quarter: 2011Q4

REPORT INFORMATION
  Report Type: 
  Country: None (occurrence: None)
  Receive Date: 20111221
  Receipt Date: 20110818
  Transmission Date: 20120403
  Serious: No
  Sender: FDA-Public Use
  Company Number: US-GLAXOSMITHKLINE-A0941555A

PATIENT
  Age: 61 Year
  Sex: Male

DRUGS (11)
  1. NORVASC [Concomitant]
  2. METFORMIN HCL [Concomitant]
  3. ASPIRIN [Concomitant]
  4. PLAVIX [Concomitant]
  5. GLUCOTROL [Concomitant]
  6. SIMVASTATIN [Concomitant]
  7. ALLOPURINOL [Concomitant]
  8. LOVAZA [Suspect]
     Indication: BLOOD TRIGLYCERIDES INCREASED
     Dosage: 2G TWICE PER DAY
     Route: 048
     Dates: start: 20100801, end: 20110801
  9. ONGLYZA [Concomitant]
  10. POTASSIUM CITRATE [Concomitant]
  11. COZAAR [Concomitant]

REACTIONS (2)
  - INCREASED TENDENCY TO BRUISE [None]
  - DIARRHOEA [None]
